FAERS Safety Report 4629914-4 (Version None)
Quarter: 2005Q2

REPORT INFORMATION
  Report Type: 
  Country: None (occurrence: None)
  Receive Date: 20050408
  Receipt Date: 20041011
  Transmission Date: 20051028
  Serious: Yes (Hospitalization)
  Sender: FDA-Public Use
  Company Number: DE-MERCK-0410DEU00373

PATIENT
  Age: 65 Year
  Sex: Female

DRUGS (6)
  1. VIOXX [Suspect]
     Route: 048
     Dates: start: 20010102, end: 20021006
  2. VIOXX [Suspect]
     Route: 048
     Dates: start: 20021007
  3. VALSARTAN [Concomitant]
     Route: 048
     Dates: start: 20000101, end: 20040401
  4. FUROSEMIDE [Concomitant]
     Route: 048
     Dates: start: 20000101
  5. EQUILIN SODIUM SULFATE AND ESTRONE SODIUM SULFATE [Concomitant]
     Route: 048
     Dates: start: 19800101, end: 20040501
  6. ALLOPURINOL [Concomitant]
     Route: 048
     Dates: start: 19890101

REACTIONS (5)
  - BLOOD PRESSURE FLUCTUATION [None]
  - CEREBRAL INFARCTION [None]
  - HYPERSENSITIVITY [None]
  - HYPERTENSION [None]
  - LACUNAR INFARCTION [None]
